FAERS Safety Report 7537132-5 (Version None)
Quarter: 2011Q2

REPORT INFORMATION
  Report Type: 
  Country: None (occurrence: None)
  Receive Date: 20110609
  Receipt Date: 20110606
  Transmission Date: 20111010
  Serious: Yes (Death)
  Sender: FDA-Public Use
  Company Number: PHHY2011US45241

PATIENT
  Sex: Male
  Weight: 62.5 kg

DRUGS (1)
  1. EXJADE [Suspect]
     Indication: MYELODYSPLASTIC SYNDROME
     Dosage: 1000 MG, DAILY
     Route: 048
     Dates: start: 20080801, end: 20110401

REACTIONS (3)
  - NEOPLASM MALIGNANT [None]
  - DIARRHOEA [None]
  - NEOPLASM PROGRESSION [None]
